FAERS Safety Report 4741549-1 (Version None)
Quarter: 2005Q3

REPORT INFORMATION
  Report Type: 
  Country: None (occurrence: None)
  Receive Date: 20050808
  Receipt Date: 20050722
  Transmission Date: 20060218
  Serious: Yes (Other)
  Sender: FDA-Public Use
  Company Number: 2005PL000058

PATIENT
  Age: 46 Year
  Sex: Male

DRUGS (2)
  1. AZATHIOPRINE [Suspect]
     Indication: COLLAGEN DISORDER
  2. DEXAMETHASONE [Suspect]
     Indication: COLLAGEN DISORDER
     Dosage: PO
     Route: 048

REACTIONS (19)
  - ASEPTIC NECROSIS BONE [None]
  - BASAL CELL CARCINOMA [None]
  - BLADDER CANCER [None]
  - BRAIN NEOPLASM [None]
  - CEREBRAL SARCOIDOSIS [None]
  - CONDITION AGGRAVATED [None]
  - DYSPNOEA [None]
  - HAEMATURIA [None]
  - HAEMOPTYSIS [None]
  - HEPATIC ENZYME INCREASED [None]
  - HYDRONEPHROSIS [None]
  - KAPOSI'S SARCOMA [None]
  - LUNG INFECTION [None]
  - LUNG INFILTRATION [None]
  - NEUROLOGICAL SYMPTOM [None]
  - POLYARTHRITIS [None]
  - SINUSITIS [None]
  - SQUAMOUS CELL CARCINOMA [None]
  - URINARY TRACT INFECTION [None]
